FAERS Safety Report 7016568-5 (Version None)
Quarter: 2010Q3

REPORT INFORMATION
  Report Type: 
  Country: None (occurrence: None)
  Receive Date: 20100927
  Receipt Date: 20100920
  Transmission Date: 20110219
  Serious: Yes (Death)
  Sender: FDA-Public Use
  Company Number: A0883037A

PATIENT
  Sex: Female
  Weight: 47 kg

DRUGS (4)
  1. SERETIDE [Suspect]
     Indication: ASTHMA
     Dosage: 1PUFF THREE TIMES PER DAY
     Dates: start: 20100401, end: 20100821
  2. DECADRON [Concomitant]
     Dosage: 1TAB TWICE PER DAY
     Dates: start: 20100501
  3. ACETYLCYSTEINE [Concomitant]
     Dosage: 1SAC THREE TIMES PER DAY
     Dates: start: 20100501
  4. CHEMOTHERAPY [Concomitant]

REACTIONS (1)
  - RESPIRATORY FAILURE [None]
